FAERS Safety Report 20594536 (Version 1)
Quarter: 2022Q1

REPORT INFORMATION
  Report Type: Spontaneous
  Country: CN (occurrence: CN)
  Receive Date: 20220315
  Receipt Date: 20220315
  Transmission Date: 20220423
  Serious: Yes (Life-Threatening, Hospitalization)
  Sender: FDA-Public Use
  Company Number: CN-BAYER-2022A034354

PATIENT
  Age: 70 Year
  Sex: Female
  Weight: 55 kg

DRUGS (3)
  1. RIVAROXABAN [Suspect]
     Active Substance: RIVAROXABAN
     Indication: Anticoagulant therapy
     Dosage: 15 MG, BID
     Route: 048
     Dates: start: 20191020, end: 20191107
  2. RIVAROXABAN [Suspect]
     Active Substance: RIVAROXABAN
     Indication: Venous thrombosis limb
     Route: 048
  3. RIVAROXABAN [Suspect]
     Active Substance: RIVAROXABAN
     Indication: Atrial fibrillation
     Route: 048

REACTIONS (6)
  - Coagulopathy [Recovering/Resolving]
  - Renal impairment [Recovering/Resolving]
  - Urine uric acid increased [Recovering/Resolving]
  - Shock [Unknown]
  - Pneumonia [Unknown]
  - Pulmonary cavitation [Unknown]

NARRATIVE: CASE EVENT DATE: 20191106
